FAERS Safety Report 18953602 (Version 1)
Quarter: 2021Q1

REPORT INFORMATION
  Report Type: Spontaneous
  Country: US (occurrence: US)
  Receive Date: 20210226
  Receipt Date: 20210226
  Transmission Date: 20210420
  Serious: Yes (Life-Threatening, Hospitalization)
  Sender: FDA-Public Use
  Company Number: None

PATIENT
  Age: 78 Year
  Sex: Male
  Weight: 82.8 kg

DRUGS (2)
  1. HEARTWAVE HVAD [Suspect]
     Active Substance: DEVICE
  2. WAFARIN SODIUM [Suspect]
     Active Substance: WARFARIN SODIUM

REACTIONS (2)
  - Device malfunction [None]
  - Thrombosis in device [None]

NARRATIVE: CASE EVENT DATE: 20201206
